FAERS Safety Report 5182971-1 (Version None)
Quarter: 2006Q4

REPORT INFORMATION
  Report Type: 
  Country: None (occurrence: None)
  Receive Date: 20061212
  Receipt Date: 20061201
  Transmission Date: 20070319
  Serious: Yes (Hospitalization)
  Sender: FDA-Public Use
  Company Number: 2006-03103

PATIENT
  Age: 66 Year
  Sex: Female
  Weight: 71.7 kg

DRUGS (3)
  1. VELCADE [Suspect]
     Indication: MULTIPLE MYELOMA
     Dosage: 3.50 MG, INTRAVENOUS
     Route: 042
     Dates: start: 20061114, end: 20061121
  2. PROCRIT [Concomitant]
  3. ZOMETA [Concomitant]

REACTIONS (5)
  - CARDIAC FAILURE CONGESTIVE [None]
  - DIALYSIS [None]
  - DYSPNOEA [None]
  - HEART RATE INCREASED [None]
  - RENAL FAILURE [None]
